FAERS Safety Report 13228149 (Version 1)
Quarter: 2017Q1

REPORT INFORMATION
  Report Type: Spontaneous
  Country: US (occurrence: US)
  Receive Date: 20170213
  Receipt Date: 20170213
  Transmission Date: 20170428
  Serious: No
  Sender: FDA-Public Use
  Company Number: US-ROCHE-1822925

PATIENT
  Sex: Male

DRUGS (1)
  1. XOLAIR [Suspect]
     Active Substance: OMALIZUMAB
     Indication: ASTHMA
     Route: 065

REACTIONS (8)
  - Ear pain [Unknown]
  - Lymphadenopathy [Unknown]
  - Neck pain [Unknown]
  - Pruritus [Unknown]
  - Arthralgia [Unknown]
  - Cough [Unknown]
  - Vomiting [Unknown]
  - Nausea [Unknown]
